FAERS Safety Report 9437600 (Version 1)
Quarter: 2013Q3

REPORT INFORMATION
  Report Type: Spontaneous
  Country: JP (occurrence: JP)
  Receive Date: 20130802
  Receipt Date: 20130802
  Transmission Date: 20140515
  Serious: Yes (Hospitalization)
  Sender: FDA-Public Use
  Company Number: JP-MERCK-1307JPN016608

PATIENT
  Age: 62 Year
  Sex: Female

DRUGS (1)
  1. BONALON [Suspect]
     Dosage: 5 MG, QD
     Route: 048

REACTIONS (1)
  - Femur fracture [Recovered/Resolved]
